FAERS Safety Report 21843483 (Version 1)
Quarter: 2023Q1

REPORT INFORMATION
  Report Type: Spontaneous
  Country: US (occurrence: US)
  Receive Date: 20230110
  Receipt Date: 20230110
  Transmission Date: 20230417
  Serious: No
  Sender: FDA-Public Use
  Company Number: US-drreddys-SPO/USA/22/0159246

PATIENT
  Age: 70 Year
  Sex: Male

DRUGS (3)
  1. LENALIDOMIDE [Suspect]
     Active Substance: LENALIDOMIDE
     Indication: Plasma cell myeloma in remission
     Dosage: TAKE 1 CAPSULE BY MOUTH EVERY OTHER DAY
     Route: 048
  2. IRON TAB 28MG [Concomitant]
     Indication: Product used for unknown indication
  3. ASPIRIN TBE 81MG [Concomitant]
     Indication: Product used for unknown indication

REACTIONS (1)
  - Faeces discoloured [Not Recovered/Not Resolved]
